FAERS Safety Report 24093280 (Version 2)
Quarter: 2024Q3

REPORT INFORMATION
  Report Type: Report from Study
  Country: US (occurrence: US)
  Receive Date: 20240715
  Receipt Date: 20240819
  Transmission Date: 20241017
  Serious: Yes (Other)
  Sender: TAIHO ONCOLOGY INC
  Company Number: US-TAIHOP-2023-010066

PATIENT
  Age: 72 Year
  Sex: Female
  Weight: 83.55 kg

DRUGS (5)
  1. LONSURF [Suspect]
     Active Substance: TIPIRACIL HYDROCHLORIDE\TRIFLURIDINE
     Indication: Rectal cancer
     Dosage: CYCLE UNKNOWN
     Route: 048
     Dates: start: 20231002
  2. AMLODIPINE [Concomitant]
     Active Substance: AMLODIPINE BESYLATE
     Indication: Product used for unknown indication
  3. BENICAR [Concomitant]
     Active Substance: OLMESARTAN MEDOXOMIL
     Indication: Product used for unknown indication
  4. MILK OF MAGN [Concomitant]
     Indication: Product used for unknown indication
     Dosage: SUS
  5. MVASI [Concomitant]
     Active Substance: BEVACIZUMAB-AWWB
     Indication: Product used for unknown indication
     Route: 042

REACTIONS (9)
  - Dehydration [Unknown]
  - Intentional dose omission [Unknown]
  - Product dose omission in error [Unknown]
  - Weight decreased [Unknown]
  - Asthenia [Unknown]
  - White blood cell count decreased [Unknown]
  - Fatigue [Unknown]
  - Dyspnoea [Unknown]
  - Hypersomnia [Unknown]

NARRATIVE: CASE EVENT DATE: 20240118
